FAERS Safety Report 21384382 (Version 1)
Quarter: 2022Q3

REPORT INFORMATION
  Report Type: Spontaneous
  Country: FR (occurrence: FR)
  Receive Date: 20220928
  Receipt Date: 20220928
  Transmission Date: 20221026
  Serious: Yes (Death)
  Sender: FDA-Public Use
  Company Number: FR-AFSSAPS-AN20221933

PATIENT
  Age: 26 Year
  Sex: Female
  Weight: 78 kg

DRUGS (10)
  1. NOREPINEPHRINE [Suspect]
     Active Substance: NOREPINEPHRINE
     Indication: Circulatory collapse
     Dosage: UNK
     Route: 040
     Dates: start: 20220308, end: 20220308
  2. SUFENTANIL [Suspect]
     Active Substance: SUFENTANIL
     Indication: Epidural analgesia
     Dosage: 6 MILLILITER, UNK
     Route: 008
     Dates: start: 20220308, end: 20220308
  3. EPHEDRINE HYDROCHLORIDE [Suspect]
     Active Substance: EPHEDRINE HYDROCHLORIDE
     Indication: Hypotension
     Dosage: 27 MILLIGRAM, UNK
     Route: 040
     Dates: start: 20220308, end: 20220308
  4. PHLOROGLUCINOL [Suspect]
     Active Substance: PHLOROGLUCINOL
     Indication: Pain
     Dosage: 3 DOSAGE FORM, UNK
     Route: 040
     Dates: start: 20220308, end: 20220308
  5. BUPIVACAINE [Suspect]
     Active Substance: BUPIVACAINE
     Indication: Spinal anaesthesia
     Dosage: UNK
     Route: 029
     Dates: start: 20220308, end: 20220308
  6. SUFENTANIL [Suspect]
     Active Substance: SUFENTANIL
     Indication: Spinal anaesthesia
     Dosage: 110 MICROGRAM, UNK
     Route: 029
     Dates: start: 20220308, end: 20220308
  7. OXYTOCIN [Suspect]
     Active Substance: OXYTOCIN
     Indication: Uterine hypotonus
     Dosage: UNK
     Route: 040
     Dates: start: 20220308, end: 20220308
  8. PHENYLEPHRINE [Suspect]
     Active Substance: PHENYLEPHRINE HYDROCHLORIDE
     Indication: Circulatory collapse
     Dosage: 200 MICROGRAM, UNK
     Route: 040
     Dates: start: 20220308, end: 20220308
  9. ROPIVACAINE HYDROCHLORIDE [Suspect]
     Active Substance: ROPIVACAINE HYDROCHLORIDE
     Indication: Epidural analgesia
     Dosage: 60 MILLILITER, UNK
     Route: 008
     Dates: start: 20220308, end: 20220308
  10. EPINEPHRINE BITARTRATE\LIDOCAINE HYDROCHLORIDE [Suspect]
     Active Substance: EPINEPHRINE BITARTRATE\LIDOCAINE HYDROCHLORIDE
     Indication: Epidural anaesthesia
     Dosage: 8 MILLILITER, UNK
     Route: 008
     Dates: start: 20220308, end: 20220308

REACTIONS (1)
  - Cardio-respiratory arrest [Fatal]

NARRATIVE: CASE EVENT DATE: 20220308
